FAERS Safety Report 16290180 (Version 4)
Quarter: 2019Q3

REPORT INFORMATION
  Report Type: Spontaneous
  Country: US (occurrence: US)
  Receive Date: 20190509
  Receipt Date: 20190703
  Transmission Date: 20191004
  Serious: No
  Sender: FDA-Public Use
  Company Number: US-VERTEX PHARMACEUTICALS-2019-004128

PATIENT
  Sex: Female
  Weight: 22 kg

DRUGS (19)
  1. ORKAMBI [Suspect]
     Active Substance: IVACAFTOR\LUMACAFTOR
     Indication: CYSTIC FIBROSIS
     Dosage: 2 DOSAGE FORM (100/125 MG EACH), BID
     Route: 048
     Dates: start: 201612, end: 201905
  2. ARISTOCORT                         /00031901/ [Concomitant]
     Dosage: UNK, TID
     Route: 061
  3. ZYRTEC [Concomitant]
     Active Substance: CETIRIZINE HYDROCHLORIDE
     Dosage: 5 MG, QD
     Route: 048
  4. ZANTAC [Concomitant]
     Active Substance: RANITIDINE HYDROCHLORIDE
     Dosage: 1 DOSAGE FORM, BID
     Route: 048
  5. ZITHROMAX [Concomitant]
     Active Substance: AZITHROMYCIN DIHYDRATE
     Dosage: 1 DOSAGE FORM, BID (2 TABS ON DAY 1)
     Route: 048
  6. FLONASE                            /00908302/ [Concomitant]
     Active Substance: MOMETASONE FUROATE
     Dosage: 2 PUFFS (50 MCG/ACT, 1-1 FROM EACH NOSTRILS), QD
     Route: 045
  7. CAYSTON [Concomitant]
     Active Substance: AZTREONAM
     Dosage: 1 MILLILITER, TID
     Route: 048
  8. PULMICORT TURBUHALER [Concomitant]
     Active Substance: BUDESONIDE
     Dosage: 2 VIALS, BID
     Route: 055
  9. SINGULAIR [Concomitant]
     Active Substance: MONTELUKAST SODIUM
     Dosage: HALF TABLET, QD
     Route: 048
  10. XOPENEX HFA [Concomitant]
     Active Substance: LEVALBUTEROL TARTRATE
     Dosage: 2 PUFFS (90 MCG/ACT), PRN (EVERY 4 HOURS)
     Route: 055
  11. XOPENEX [Concomitant]
     Active Substance: LEVALBUTEROL HYDROCHLORIDE
     Dosage: 3 MILLILITER, PRN (EVERY 8 HOURS)
     Route: 055
  12. KEFLEX [Concomitant]
     Active Substance: CEPHALEXIN
     Dosage: 1 DOSAGE FORM, BID (EVERY 12 BHOURS)
     Route: 048
  13. MARINOL                            /00003301/ [Concomitant]
     Active Substance: ALLOPURINOL
     Dosage: 1 DOSAGE FORM, BID (PRIOR TO LUNCH AND DINEER)
     Route: 048
  14. HYPERSAL [Concomitant]
     Active Substance: SODIUM CHLORIDE
     Dosage: 4 MILLILITER, BID (EVERY 12 HOURS)
     Route: 048
  15. PERTZYE [Concomitant]
     Active Substance: PANCRELIPASE AMYLASE\PANCRELIPASE LIPASE\PANCRELIPASE PROTEASE
     Dosage: 3 DOSAGE FORM WIH SNACKS
     Route: 048
  16. LEVAQUIN [Concomitant]
     Active Substance: LEVOFLOXACIN
     Dosage: 1 DOSAGE FORM, BID
     Route: 048
  17. PULMOZYME [Concomitant]
     Active Substance: DORNASE ALFA
     Dosage: 2.5 MILLILITER, BID
     Route: 048
  18. PERTZYE [Concomitant]
     Active Substance: PANCRELIPASE AMYLASE\PANCRELIPASE LIPASE\PANCRELIPASE PROTEASE
     Dosage: 5 DOSAGE FORM, TID (WITH MEALS)
     Route: 048
  19. QVAR [Concomitant]
     Active Substance: BECLOMETHASONE DIPROPIONATE
     Dosage: 2 PUFFS (40 MCG/ACT), BID
     Route: 055

REACTIONS (4)
  - Pulmonary function test decreased [Recovered/Resolved]
  - Infective pulmonary exacerbation of cystic fibrosis [Recovered/Resolved]
  - Weight gain poor [Recovered/Resolved]
  - Drug ineffective [Unknown]

NARRATIVE: CASE EVENT DATE: 2017
